FAERS Safety Report 20202465 (Version 2)
Quarter: 2022Q1

REPORT INFORMATION
  Report Type: Spontaneous
  Country: BR (occurrence: BR)
  Receive Date: 20211217
  Receipt Date: 20220122
  Transmission Date: 20220424
  Serious: Yes (Life-Threatening, Hospitalization, Other)
  Sender: FDA-Public Use
  Company Number: BR-Accord-247607

PATIENT
  Age: 56 Year
  Sex: Male
  Weight: 95 kg

DRUGS (15)
  1. PACLITAXEL [Suspect]
     Active Substance: PACLITAXEL
     Indication: Tonsil cancer
     Route: 042
     Dates: start: 20211029, end: 20211210
  2. SODIUM CHLORIDE [Concomitant]
     Active Substance: SODIUM CHLORIDE
     Indication: Chemotherapy side effect prophylaxis
     Dosage: STRENGTH:0.9%
  3. DEXAMETHASONE [Concomitant]
     Active Substance: DEXAMETHASONE
     Indication: Chemotherapy side effect prophylaxis
  4. CIMETIDINE [Concomitant]
     Active Substance: CIMETIDINE
     Indication: Chemotherapy side effect prophylaxis
  5. GRANISETRON [Concomitant]
     Active Substance: GRANISETRON
     Indication: Chemotherapy side effect prophylaxis
  6. ALLOPURINOL [Concomitant]
     Active Substance: ALLOPURINOL
  7. AMLODIPINE [Concomitant]
     Active Substance: AMLODIPINE BESYLATE
  8. CALCIUM CARBONATE [Concomitant]
     Active Substance: CALCIUM CARBONATE
  9. ERYTHROPOIETIN [Concomitant]
     Active Substance: ERYTHROPOIETIN
  10. IRON POLYMALTOSE [Concomitant]
     Active Substance: IRON POLYMALTOSE
  11. BISOPROLOL [Concomitant]
     Active Substance: BISOPROLOL
  12. FUROSEMIDE [Concomitant]
     Active Substance: FUROSEMIDE
  13. INSULIN NOS [Concomitant]
     Active Substance: INSULIN NOS
  14. PANTOPRAZOLE [Concomitant]
     Active Substance: PANTOPRAZOLE
  15. ROSUVASTATIN CALCIUM [Concomitant]
     Active Substance: ROSUVASTATIN CALCIUM

REACTIONS (3)
  - Dyspnoea [Recovered/Resolved]
  - Hypoxia [Recovered/Resolved]
  - Off label use [Unknown]

NARRATIVE: CASE EVENT DATE: 20211210
